FAERS Safety Report 4273009-9 (Version None)
Quarter: 2004Q1

REPORT INFORMATION
  Report Type: 
  Country: None (occurrence: None)
  Receive Date: 20040115
  Receipt Date: 20031217
  Transmission Date: 20041129
  Serious: No
  Sender: FDA-Public Use
  Company Number: 6962

PATIENT
  Age: 78 Year
  Sex: Male

DRUGS (3)
  1. AMIODARONE [Suspect]
     Indication: ATRIOVENTRICULAR BLOCK
  2. AMIODARONE [Suspect]
     Indication: VENTRICULAR EXTRASYSTOLES
  3. PROPYLTHIOURACIL [Concomitant]

REACTIONS (1)
  - HYPERTHYROIDISM [None]
